FAERS Safety Report 4432476-8 (Version None)
Quarter: 2004Q3

REPORT INFORMATION
  Report Type: 
  Country: None (occurrence: None)
  Receive Date: 20040820
  Receipt Date: 20040810
  Transmission Date: 20050211
  Serious: Yes (Hospitalization)
  Sender: FDA-Public Use
  Company Number: 2004054472

PATIENT
  Age: 47 Year
  Sex: Female
  Weight: 63.05 kg

DRUGS (27)
  1. BENGAY PAIN RELIEVING PATCH (MENTHOL) [Suspect]
     Indication: BACK PAIN
     Dosage: 1 PATCH Q MORNING, TRANSDERMAL
     Route: 062
     Dates: start: 20010701
  2. BEN-GAY ULTRA (CAMPHOR, MENTHOL, METHYL SALICYLATE) [Suspect]
     Indication: BACK PAIN
     Dosage: SIX TIMES DAILY TO SPINE, TOPICAL
     Route: 061
     Dates: start: 20030801
  3. CETIRIZINE HCL [Concomitant]
  4. GABAPENTIN [Concomitant]
  5. BACLOFEN [Concomitant]
  6. IBUPROFEN [Concomitant]
  7. OXYCOCET (OXYCODONE HYDROCHLORIDE, PARACETAMOL) [Concomitant]
  8. THYROID TAB [Concomitant]
  9. ANTI-ASTHMATICS (ANTI-ASTHMATICS) [Concomitant]
  10. LANSOPRAZOLE [Concomitant]
  11. DIURETICS (DIURETICS) [Concomitant]
  12. TUSSIN DM (GUAIFENESIN) [Concomitant]
  13. CENTRUM SILVER (ASCORBIC ACID, CALCIUM, MINERALS NOS, RETINOL, TOCOPHE [Concomitant]
  14. POTASSIUM CHLORIDE [Concomitant]
  15. RANITIDINE HYDROCHLORIDE [Concomitant]
  16. RALOXIFENE HCL [Concomitant]
  17. SIMVASTATIN [Concomitant]
  18. TEGASEROD (TEGASEROD) [Concomitant]
  19. IRON (IRON) [Concomitant]
  20. SERETIDE MITE (FLUTICASONE PROPIONATE, SALMETEROL XINAFOATE) [Concomitant]
  21. SALBUTAMOL (SALBUTAMOL) [Concomitant]
  22. IPRATROPIUM BROMIDE [Concomitant]
  23. BUDESONIDE (BUDESONIDE) [Concomitant]
  24. FLUTICASONE PROPIONATE [Concomitant]
  25. ALLEGRA-D (FEXOFENADINE, PSEUDOEPHEDRINE HYDROCHLORIDE) [Concomitant]
  26. MORPHINE [Concomitant]
  27. OXYCONTIN [Concomitant]

REACTIONS (3)
  - BACK PAIN [None]
  - MEDICATION ERROR [None]
  - RESPIRATORY DISORDER [None]
